FAERS Safety Report 20553762 (Version 1)
Quarter: 2022Q1

REPORT INFORMATION
  Report Type: Spontaneous
  Country: US (occurrence: US)
  Receive Date: 20220304
  Receipt Date: 20220304
  Transmission Date: 20220423
  Serious: No
  Sender: FDA-Public Use
  Company Number: US-GW PHARMA-202202USGW01034

PATIENT
  Age: 52 Year
  Sex: Male
  Weight: 66.667 kg

DRUGS (4)
  1. EPIDIOLEX [Suspect]
     Active Substance: CANNABIDIOL
     Indication: Epilepsy
     Dosage: 4.49 MG/KG/DAY, 150 MILLIGRAM, BID
     Route: 048
     Dates: start: 202202, end: 202202
  2. EPIDIOLEX [Suspect]
     Active Substance: CANNABIDIOL
     Dosage: 8.99 MG/KG/DAY, 300 MILLIGRAM, BID
     Route: 048
     Dates: start: 202202, end: 202202
  3. EPIDIOLEX [Suspect]
     Active Substance: CANNABIDIOL
     Dosage: 13.49 MG/KG/DAY, 450 MILLIGRAM, BID
     Route: 048
     Dates: start: 202202, end: 202202
  4. EPIDIOLEX [Suspect]
     Active Substance: CANNABIDIOL
     Dosage: 17.99 MG/KG/DAY, 600 MILLIGRAM, BID
     Route: 048
     Dates: start: 202202

REACTIONS (2)
  - Dizziness [Unknown]
  - Fatigue [Unknown]

NARRATIVE: CASE EVENT DATE: 20220201
